FAERS Safety Report 5226529-4 (Version None)
Quarter: 2007Q1

REPORT INFORMATION
  Report Type: 
  Country: None (occurrence: None)
  Receive Date: 20061201
  Receipt Date: 20060921
  Transmission Date: 20070707
  Serious: No
  Sender: FDA-Public Use
  Company Number: US200609005423

PATIENT
  Age: 61 Year
  Sex: Female
  Weight: 59 kg

DRUGS (4)
  1. CYMBALTA [Suspect]
     Indication: DEPRESSION
     Dosage: SEE  IMAGE
     Route: 048
     Dates: start: 20060501
  2. CYMBALTA [Suspect]
  3. AUGMENTIN /SCH/ (AMOXICILLIN, CLAVULANTE POTASSIUM) [Concomitant]
  4. ATIVAN [Concomitant]

REACTIONS (3)
  - DRUG INEFFECTIVE [None]
  - MALAISE [None]
  - PANIC REACTION [None]
